FAERS Safety Report 24291459 (Version 1)
Quarter: 2024Q3

REPORT INFORMATION
  Report Type: Spontaneous
  Country: US (occurrence: None)
  Receive Date: 20240906
  Receipt Date: 20240906
  Transmission Date: 20241017
  Serious: No
  Sender: DOMPE FARMACEUTICI
  Company Number: US-FARMAPROD-202309-2646

PATIENT
  Age: 79 Year
  Sex: Female
  Weight: 81.19 kg

DRUGS (23)
  1. OXERVATE [Suspect]
     Active Substance: CENEGERMIN-BKBJ
     Indication: Neurotrophic keratopathy
     Route: 047
     Dates: start: 20230830
  2. OXERVATE [Suspect]
     Active Substance: CENEGERMIN-BKBJ
  3. COLACE [Concomitant]
     Active Substance: DOCUSATE SODIUM
  4. VITAMIN D3 [Concomitant]
     Active Substance: CHOLECALCIFEROL
  5. DEBROX [Concomitant]
     Active Substance: CARBAMIDE PEROXIDE
  6. DORZOLAMIDE HYDROCHLORIDE [Concomitant]
     Active Substance: DORZOLAMIDE HYDROCHLORIDE
  7. FLUTICASONE PROPIONATE [Concomitant]
     Active Substance: FLUTICASONE PROPIONATE
     Dosage: SUSPENSION
  8. BUDESONIDE-FORMOTEROL FUMARATE [Concomitant]
  9. MECLIZINE HYDROCHLORIDE [Concomitant]
     Active Substance: MECLIZINE HYDROCHLORIDE
  10. METOPROLOL SUCCINATE [Concomitant]
     Active Substance: METOPROLOL SUCCINATE
     Dosage: FOR 24 HOURS
  11. ATORVASTATIN CALCIUM [Concomitant]
     Active Substance: ATORVASTATIN CALCIUM
  12. VALSARTAN [Concomitant]
     Active Substance: VALSARTAN
  13. INDAPAMIDE [Concomitant]
     Active Substance: INDAPAMIDE
  14. METFORMIN HYDROCHLORIDE [Concomitant]
     Active Substance: METFORMIN HYDROCHLORIDE
  15. LATANOPROST [Concomitant]
     Active Substance: LATANOPROST
  16. IBUPROFEN [Concomitant]
     Active Substance: IBUPROFEN
  17. AMMONIUM LACTATE [Concomitant]
     Active Substance: AMMONIUM LACTATE
  18. ALBUTEROL SULFATE [Concomitant]
     Active Substance: ALBUTEROL SULFATE
     Dosage: 2.5 MG / 3 ML VIAL FOR NEBULIZER
  19. OMEPRAZOLE [Concomitant]
     Active Substance: OMEPRAZOLE
  20. MONTELUKAST SODIUM [Concomitant]
     Active Substance: MONTELUKAST\MONTELUKAST SODIUM
  21. CLOTRIMAZOLE [Concomitant]
     Active Substance: CLOTRIMAZOLE
  22. TIMOLOL MALEATE [Concomitant]
     Active Substance: TIMOLOL MALEATE
  23. VALACYCLOVIR [Concomitant]
     Active Substance: VALACYCLOVIR HYDROCHLORIDE

REACTIONS (6)
  - Product dose omission issue [Unknown]
  - Eye pain [Not Recovered/Not Resolved]
  - Ocular hyperaemia [Unknown]
  - Photophobia [Unknown]
  - Ocular discomfort [Not Recovered/Not Resolved]
  - Weight decreased [Recovering/Resolving]

NARRATIVE: CASE EVENT DATE: 20230801
